FAERS Safety Report 6087095-7 (Version None)
Quarter: 2009Q1

REPORT INFORMATION
  Report Type: 
  Country: None (occurrence: None)
  Receive Date: 20090219
  Receipt Date: 20081229
  Transmission Date: 20090719
  Serious: No
  Sender: FDA-Public Use
  Company Number: WAES 0812USA05121

PATIENT

DRUGS (7)
  1. ISENTRESS [Suspect]
     Indication: HIV TEST POSITIVE
     Dosage: 400 MG/BID/PO
     Route: 048
     Dates: start: 20081215, end: 20081201
  2. APIDRA [Concomitant]
  3. CELLCEPT [Concomitant]
  4. PROGRAF [Concomitant]
  5. TRUVADA [Concomitant]
  6. HYDRALAZINE HCL [Concomitant]
  7. TYLENOL [Concomitant]

REACTIONS (1)
  - ANAEMIA [None]
